FAERS Safety Report 16875833 (Version 1)
Quarter: 2019Q4

REPORT INFORMATION
  Report Type: Spontaneous
  Country: US (occurrence: US)
  Receive Date: 20191002
  Receipt Date: 20191002
  Transmission Date: 20200122
  Serious: No
  Sender: FDA-Public Use
  Company Number: US-GW PHARMA-201906USGW2205

PATIENT

DRUGS (3)
  1. ONFI [Interacting]
     Active Substance: CLOBAZAM
     Indication: PRODUCT USED FOR UNKNOWN INDICATION
     Dosage: HIGH DOSE
     Route: 065
     Dates: end: 2019
  2. ONFI [Interacting]
     Active Substance: CLOBAZAM
     Dosage: DOSE DECREASED
     Route: 065
     Dates: start: 2019
  3. EPIDIOLEX [Suspect]
     Active Substance: CANNABIDIOL
     Indication: LENNOX-GASTAUT SYNDROME
     Dosage: 175 MG, BID
     Route: 048
     Dates: start: 20181208

REACTIONS (8)
  - Gait inability [Unknown]
  - Drug interaction [Recovering/Resolving]
  - Anticonvulsant drug level increased [Unknown]
  - Thought blocking [Unknown]
  - Aphasia [Unknown]
  - Seizure [Unknown]
  - Feeling drunk [Unknown]
  - Fatigue [Unknown]

NARRATIVE: CASE EVENT DATE: 2019
